FAERS Safety Report 8808089 (Version 1)
Quarter: 2012Q4

REPORT INFORMATION
  Report Type: 
  Country: US (occurrence: US)
  Receive Date: 20120925
  Receipt Date: 20120925
  Transmission Date: 20130627
  Serious: No
  Sender: FDA-Public Use
  Company Number: US-ASTRAZENECA-2012SE71556

PATIENT
  Age: 62 Year
  Sex: Female

DRUGS (20)
  1. ATENOLOL [Suspect]
     Route: 065
  2. SYMBICORT [Suspect]
     Dosage: 160/4.5 MCG, 2 PUFFS BID
     Route: 055
  3. NEXIUM [Suspect]
     Route: 048
  4. CRESTOR [Suspect]
     Route: 048
  5. ACCURETIC [Concomitant]
     Route: 048
  6. ELAVIL [Concomitant]
     Route: 048
  7. CELEBREX [Concomitant]
     Route: 048
  8. CHOLECALCIFEROL, VITAMIN D3 [Concomitant]
     Route: 048
  9. CLARINEX [Concomitant]
     Route: 048
  10. CATAPRES [Concomitant]
     Route: 048
  11. FLEXERIL [Concomitant]
     Indication: MUSCLE SPASMS
     Dosage: 1 TABLET, THREE TIMES A DAY AS NEEDED
     Route: 048
  12. POLY-IRON [Concomitant]
     Indication: IRON DEFICIENCY ANAEMIA
     Route: 048
  13. NEURONTIN [Concomitant]
     Route: 048
  14. PROAIR HFA [Concomitant]
     Dosage: 90 MCG, 2 PUFFS INTO THE LUNGS 4 TIMES DAILY
     Route: 055
  15. TRANSDERM-SCOP [Concomitant]
     Route: 062
  16. SINGULAIR [Concomitant]
     Route: 048
  17. JANUVIA [Concomitant]
     Route: 048
  18. ULTRAM [Concomitant]
     Dosage: 1 TABLET EVERY 6 HOURS AS NEEDED
     Route: 048
  19. VITAMIN C [Concomitant]
     Route: 048
  20. INFLUENZA [Concomitant]

REACTIONS (17)
  - Type 2 diabetes mellitus [Unknown]
  - Neck pain [Unknown]
  - Blood cholesterol increased [Unknown]
  - Hypertension [Unknown]
  - Meniere^s disease [Unknown]
  - Back pain [Unknown]
  - Arthralgia [Unknown]
  - Snoring [Unknown]
  - Anaemia [Unknown]
  - Arthralgia [Unknown]
  - Chest pain [Unknown]
  - Deafness [Unknown]
  - Asthma [Unknown]
  - Dyspnoea [Unknown]
  - Gastrooesophageal reflux disease [Unknown]
  - Insomnia [Unknown]
  - Headache [Unknown]
